FAERS Safety Report 17178164 (Version 4)
Quarter: 2020Q1

REPORT INFORMATION
  Report Type: Spontaneous
  Country: US (occurrence: US)
  Receive Date: 20191219
  Receipt Date: 20200127
  Transmission Date: 20200409
  Serious: Yes (Other)
  Sender: FDA-Public Use
  Company Number: US-AMGEN INC.-USASP2019210653

PATIENT
  Age: 60 Year
  Sex: Female

DRUGS (4)
  1. AIMOVIG [Suspect]
     Active Substance: ERENUMAB-AOOE
     Indication: MIGRAINE
     Dosage: 70 MILLIGRAM, QMO
     Route: 065
     Dates: start: 201909
  2. AIMOVIG [Suspect]
     Active Substance: ERENUMAB-AOOE
     Dosage: 70 MILLIGRAM, QMO
     Route: 065
  3. IGG [Concomitant]
     Active Substance: HUMAN IMMUNOGLOBULIN G
     Indication: IMMUNODEFICIENCY
     Dosage: UNK, QMO
  4. AIMOVIG [Suspect]
     Active Substance: ERENUMAB-AOOE
     Dosage: 70 MILLIGRAM, QMO
     Route: 065

REACTIONS (9)
  - Wrong technique in product usage process [Unknown]
  - Device malfunction [Unknown]
  - Intervertebral disc disorder [Unknown]
  - Accidental exposure to product [Unknown]
  - Pneumonia [Not Recovered/Not Resolved]
  - Nerve compression [Unknown]
  - Tooth disorder [Unknown]
  - Incorrect dose administered by device [Unknown]
  - Migraine [Unknown]

NARRATIVE: CASE EVENT DATE: 20191101
